FAERS Safety Report 9236266 (Version 1)
Quarter: 2013Q2

REPORT INFORMATION
  Report Type: Spontaneous
  Country: FR (occurrence: FR)
  Receive Date: 20130417
  Receipt Date: 20130422
  Transmission Date: 20140414
  Serious: Yes (Hospitalization)
  Sender: FDA-Public Use
  Company Number: FR-PFIZER INC-2013114103

PATIENT
  Age: 20 Year
  Sex: Male

DRUGS (16)
  1. EFFEXOR LP [Suspect]
     Dosage: 75 MG, 2X/DAY
     Route: 048
  2. EFFEXOR LP [Suspect]
     Dosage: 50 X 75 MG, SINGLE
     Route: 048
     Dates: start: 20130319, end: 20130319
  3. TERCIAN [Suspect]
     Dosage: 25 MG, 1X/DAY IN THE EVENING
     Route: 048
  4. TERCIAN [Suspect]
     Dosage: 43 X 25MG, SINGLE
     Route: 048
     Dates: start: 20130319, end: 20130319
  5. TRAMADOL BASE [Suspect]
     Dosage: 20 DF, SINGLE
     Route: 048
     Dates: start: 20130319, end: 20130319
  6. PARACETAMOL [Suspect]
     Dosage: UNK
     Route: 048
     Dates: start: 20130319, end: 20130319
  7. BROMAZEPAM [Suspect]
     Dosage: UNK
     Route: 048
  8. LYSANXIA [Suspect]
     Dosage: 20 MG, 2X/DAY
     Route: 048
  9. LYSANXIA [Suspect]
     Route: 048
  10. DEBRIDAT [Concomitant]
     Dosage: UNK
     Route: 048
  11. ATARAX [Concomitant]
     Dosage: UNK
     Route: 048
  12. POLY-KARAYA [Concomitant]
     Dosage: UNK
     Route: 048
  13. PINAVERIUM BROMIDE [Concomitant]
     Dosage: UNK
     Route: 048
  14. TOPALGIC [Concomitant]
     Dosage: UNK
     Route: 048
  15. DOLIPRANE [Concomitant]
     Dosage: UNK
     Route: 048
  16. THERALENE [Concomitant]
     Dosage: 10 GTT, 1X/DAY IN THE EVENING

REACTIONS (4)
  - Coma [Recovered/Resolved]
  - Toxicity to various agents [Recovered/Resolved]
  - Tachycardia [Recovered/Resolved]
  - Pneumonia aspiration [Recovered/Resolved]
